FAERS Safety Report 5071223-6 (Version None)
Quarter: 2006Q3

REPORT INFORMATION
  Report Type: 
  Country: None (occurrence: None)
  Receive Date: 20060803
  Receipt Date: 20060803
  Transmission Date: 20061208
  Serious: Yes (Hospitalization)
  Sender: FDA-Public Use
  Company Number: None

PATIENT
  Sex: Male
  Weight: 78 kg

DRUGS (15)
  1. GLEEVEC [Suspect]
     Indication: GLIOBLASTOMA
     Dosage: 400 MG QD PO
     Route: 048
     Dates: start: 20060309, end: 20060502
  2. RAD001 [Suspect]
     Indication: GLIOBLASTOMA
     Dosage: 2.5 MG QOD PO
     Route: 048
     Dates: start: 20060309, end: 20060502
  3. ATORVASTATIN CALCIUM [Concomitant]
  4. MYCELEX [Concomitant]
  5. MARINOL [Concomitant]
  6. LOVENOX [Concomitant]
  7. DIFLUCAN [Concomitant]
  8. PENTAMIDINE ISETHIONATE [Concomitant]
  9. SODIUM CHLORIDE [Concomitant]
  10. PREDNISONE TAPER [Concomitant]
  11. DECADRON [Concomitant]
  12. REGLAN [Concomitant]
  13. PEPCID [Concomitant]
  14. PROSCAR [Concomitant]
  15. PENTAMIDINE ISETHIONATE [Concomitant]

REACTIONS (13)
  - ANOREXIA [None]
  - ASTHENIA [None]
  - COAGULOPATHY [None]
  - CONVULSION [None]
  - DEEP VEIN THROMBOSIS [None]
  - FATIGUE [None]
  - HAEMOGLOBIN DECREASED [None]
  - MOBILITY DECREASED [None]
  - PNEUMOCYSTIS JIROVECI PNEUMONIA [None]
  - PNEUMONITIS [None]
  - RENAL FAILURE ACUTE [None]
  - SINUSITIS [None]
  - UPPER RESPIRATORY TRACT INFECTION [None]
